FAERS Safety Report 7377954-7 (Version None)
Quarter: 2011Q1

REPORT INFORMATION
  Report Type: 
  Country: None (occurrence: None)
  Receive Date: 20110328
  Receipt Date: 20110322
  Transmission Date: 20110831
  Serious: Yes (Hospitalization)
  Sender: FDA-Public Use
  Company Number: JP-PFIZER INC-2011014685

PATIENT
  Age: 61 Year
  Sex: Female
  Weight: 46 kg

DRUGS (14)
  1. GRAMALIL [Suspect]
     Indication: RESTLESSNESS
     Dosage: 50 MG, 1X/DAY
     Route: 048
     Dates: start: 20110118, end: 20110124
  2. ROCEPHIN [Concomitant]
     Indication: INFECTION
  3. VFEND [Suspect]
     Indication: CAVERNOUS SINUS THROMBOSIS
     Dosage: 200 MG, 1X/DAY
     Route: 048
     Dates: start: 20110114, end: 20110114
  4. DEPAS [Concomitant]
     Indication: INSOMNIA
     Dosage: 0.5 MG, 1X/DAY
     Route: 048
     Dates: start: 20110117, end: 20110117
  5. FLUMARIN [Concomitant]
     Indication: INFECTION
     Dosage: 1 G, 1X/DAY
     Route: 042
     Dates: start: 20110113, end: 20110113
  6. VFEND [Suspect]
     Dosage: 200 MG, 2X/DAY
     Route: 048
     Dates: start: 20110115, end: 20110121
  7. VFEND [Suspect]
     Indication: ASPERGILLOSIS
     Dosage: 300 MG, 1X/DAY
     Route: 048
     Dates: start: 20110113, end: 20110113
  8. VANCOMYCIN HCL [Suspect]
     Indication: MENINGITIS
     Dosage: 0.5 G, 2X/DAY
     Route: 042
     Dates: start: 20110118, end: 20110121
  9. ZOPICLONE [Suspect]
     Indication: INSOMNIA
     Dosage: 7.5 MG, 1X/DAY
     Route: 048
     Dates: start: 20110116, end: 20110117
  10. ROCEPHIN [Concomitant]
     Indication: MENINGITIS
     Dosage: 1 G, 2X/DAY
     Route: 042
     Dates: start: 20110114, end: 20110130
  11. RISPERIDONE [Suspect]
     Indication: RESTLESSNESS
     Dosage: 0.5 MG, 1X/DAY
     Route: 048
     Dates: start: 20110118, end: 20110118
  12. RISPERIDONE [Suspect]
     Dosage: 1 MG, 1X/DAY
     Route: 048
     Dates: start: 20110119, end: 20110124
  13. VANCOMYCIN HCL [Suspect]
     Indication: INFECTION
  14. PARIET [Concomitant]
     Indication: GASTRIC ULCER
     Dosage: 10 MG, 1X/DAY
     Route: 048
     Dates: start: 20110115, end: 20110124

REACTIONS (7)
  - ALTERED STATE OF CONSCIOUSNESS [None]
  - ABNORMAL BEHAVIOUR [None]
  - RESTLESSNESS [None]
  - DISORIENTATION [None]
  - HALLUCINATION, AUDITORY [None]
  - LIVER DISORDER [None]
  - HALLUCINATION, VISUAL [None]
